FAERS Safety Report 20736561 (Version 1)
Quarter: 2022Q2

REPORT INFORMATION
  Report Type: Spontaneous
  Country: NL (occurrence: NL)
  Receive Date: 20220421
  Receipt Date: 20220421
  Transmission Date: 20220721
  Serious: Yes (Hospitalization, Other)
  Sender: FDA-Public Use
  Company Number: NL-PFIZER INC-202200413304

PATIENT
  Age: 9 Year
  Sex: Male

DRUGS (22)
  1. METHOTREXATE [Suspect]
     Active Substance: METHOTREXATE
     Indication: Autoinflammatory disease
     Dosage: 2.5 MILLIGRAM, QW (2.5 MG, WEEKLY)
     Dates: start: 201212, end: 201301
  2. METHOTREXATE [Suspect]
     Active Substance: METHOTREXATE
     Indication: Prophylaxis against graft versus host disease
  3. SIROLIMUS [Suspect]
     Active Substance: SIROLIMUS
     Indication: Autoinflammatory disease
     Dosage: UNK
  4. SIROLIMUS [Suspect]
     Active Substance: SIROLIMUS
     Dosage: 1.5 MILLIGRAM, QD (1.5 MG, 1X/DAY)
     Dates: start: 201402, end: 201405
  5. INFLIXIMAB [Suspect]
     Active Substance: INFLIXIMAB
     Indication: Autoinflammatory disease
     Dosage: 10 MILLIGRAM/KILOGRAM, QW (5 MG/KG)
     Dates: start: 201204, end: 201207
  6. INFLIXIMAB [Suspect]
     Active Substance: INFLIXIMAB
     Dosage: 20 MILLIGRAM/KILOGRAM, QW (10 MG/KG, 2X/WEEK)
     Dates: start: 201212, end: 201301
  7. INFLIXIMAB [Suspect]
     Active Substance: INFLIXIMAB
     Dosage: 20 MILLIGRAM/KILOGRAM, QW (10 MG/KG, 2X/WEEK)
     Dates: start: 201209, end: 201211
  8. INFLIXIMAB [Suspect]
     Active Substance: INFLIXIMAB
     Dosage: UNK
     Dates: start: 201304, end: 201306
  9. RITUXIMAB [Suspect]
     Active Substance: RITUXIMAB
     Indication: Autoinflammatory disease
     Dosage: 375 MILLIGRAM/SQ. METER, BID (375 MG/M2 ( X 2)
     Dates: start: 201205
  10. RITUXIMAB [Suspect]
     Active Substance: RITUXIMAB
     Dosage: 375 MILLIGRAM/SQ. METER, QD (375 MG/M2, ( X 1)
     Dates: start: 201212
  11. THYMOCYTE IMMUNE GLOBULIN NOS [Concomitant]
     Active Substance: THYMOCYTE IMMUNE GLOBULIN NOS
     Indication: Autoinflammatory disease
     Dosage: UNK
     Dates: start: 201302
  12. FLUDARABINE [Concomitant]
     Active Substance: FLUDARABINE PHOSPHATE
     Indication: Autoinflammatory disease
     Dosage: UNK
     Dates: start: 201302
  13. METHYLPREDNISOLONE [Concomitant]
     Active Substance: METHYLPREDNISOLONE
     Indication: Autoinflammatory disease
     Dosage: 15 MILLIGRAM/KILOGRAM (15 MG/KG)
     Route: 042
     Dates: start: 201203
  14. METHYLPREDNISOLONE [Concomitant]
     Active Substance: METHYLPREDNISOLONE
     Dosage: 25 MILLIGRAM/KILOGRAM (25 MG/KG)
     Route: 042
     Dates: start: 201208
  15. DESLORATADINE [Concomitant]
     Active Substance: DESLORATADINE
     Indication: Autoinflammatory disease
     Dosage: 5 MILLIGRAM, QD (2.5 MG, 2X/DAY)
     Dates: start: 201401
  16. PREDNISONE [Concomitant]
     Active Substance: PREDNISONE
     Indication: Autoinflammatory disease
     Dosage: 10 MILLIGRAM, QD (5 MG, 2X/DAY)
     Dates: start: 201204, end: 201207
  17. PREDNISONE [Concomitant]
     Active Substance: PREDNISONE
     Dosage: 10 MILLIGRAM, QD (5 MG, 2X/DAY)
     Dates: start: 201209, end: 201211
  18. PREDNISONE [Concomitant]
     Active Substance: PREDNISONE
     Dosage: 1-2 MG/KG
     Dates: start: 201304, end: 201306
  19. PREDNISONE [Concomitant]
     Active Substance: PREDNISONE
     Dosage: 10 MILLIGRAM, QD (5 MG, 2X/DAY)
     Dates: start: 201401
  20. PREDNISONE [Concomitant]
     Active Substance: PREDNISONE
     Dosage: UNK (PREDNISONE TAPERING)
     Dates: start: 201308, end: 201312
  21. PREDNISONE [Concomitant]
     Active Substance: PREDNISONE
     Dosage: 5 MILLIGRAM (5 MG, LESS THAN OR EQUAL TO 2X/DAY)/
     Dates: start: 201402, end: 201405
  22. TREOSULFAN [Concomitant]
     Active Substance: TREOSULFAN
     Indication: Autoinflammatory disease
     Dosage: UNK
     Dates: start: 201302

REACTIONS (2)
  - Drug resistance [Unknown]
  - Off label use [Unknown]
